FAERS Safety Report 8949454 (Version 2)
Quarter: 2013Q1

REPORT INFORMATION
  Report Type: Spontaneous
  Country: US (occurrence: US)
  Receive Date: 20121206
  Receipt Date: 20130304
  Transmission Date: 20140127
  Serious: Yes (Death)
  Sender: FDA-Public Use
  Company Number: US-BRISTOL-MYERS SQUIBB COMPANY-17161787

PATIENT
  Age: 78 Year
  Sex: Male

DRUGS (5)
  1. AVALIDE [Suspect]
     Indication: HYPERTENSION
     Route: 048
     Dates: end: 201209
  2. AVAPRO [Suspect]
  3. HCTZ [Suspect]
  4. PLAVIX [Concomitant]
  5. METOPROLOL [Concomitant]
     Dosage: 1 DF = HALF TABS 25 MG

REACTIONS (2)
  - Pancreatic carcinoma [Fatal]
  - Hepatic failure [Fatal]
